FAERS Safety Report 25553051 (Version 3)
Quarter: 2025Q4

REPORT INFORMATION
  Report Type: Report from Study
  Country: CN (occurrence: CN)
  Receive Date: 20250715
  Receipt Date: 20251119
  Transmission Date: 20260118
  Serious: Yes (Hospitalization)
  Sender: ABBVIE
  Company Number: CN-ABBVIE-6367692

PATIENT
  Age: 68 Year
  Sex: Female

DRUGS (29)
  1. OZURDEX [Suspect]
     Active Substance: DEXAMETHASONE
     Indication: Diabetic retinal oedema
     Dosage: TIME INTERVAL: AS NECESSARY: DURATION: IN THE OD(IN RIGHT EYE); FREQUENCY - ONCE
     Route: 050
     Dates: start: 20250529, end: 20250529
  2. OZURDEX [Suspect]
     Active Substance: DEXAMETHASONE
     Dosage: TIME INTERVAL: AS NECESSARY: DURATION: IN THE OS(IN LEFT EYE); FREQUENCY - ONCE
     Route: 050
     Dates: start: 20250626, end: 20250626
  3. ATORVASTATIN [Concomitant]
     Active Substance: ATORVASTATIN
     Indication: Hypercholesterolaemia
     Route: 048
     Dates: start: 2021
  4. INSULIN DEGLUDEC [Concomitant]
     Active Substance: INSULIN DEGLUDEC
     Indication: Diabetes mellitus
     Dosage: DOSE - 8 IU (INTERNATIONAL UNIT)
     Route: 058
     Dates: start: 2009
  5. GLIQUIDONE [Concomitant]
     Active Substance: GLIQUIDONE
     Indication: Diabetes mellitus
     Dosage: TIME INTERVAL: 0.33333333 DAYS
     Route: 048
     Dates: start: 2019
  6. IRBESARTAN [Concomitant]
     Active Substance: IRBESARTAN
     Indication: Hypertension
     Dosage: 75 MILLIGRAM
     Route: 048
     Dates: start: 2015
  7. EZETIMIBE\SIMVASTATIN [Concomitant]
     Active Substance: EZETIMIBE\SIMVASTATIN
     Indication: Hyperlipidaemia
     Route: 048
     Dates: start: 20250411
  8. METOPROLOL [Concomitant]
     Active Substance: METOPROLOL
     Indication: Atrial fibrillation
     Route: 048
     Dates: start: 20250430
  9. DAPAGLIFLOZIN [Concomitant]
     Active Substance: DAPAGLIFLOZIN
     Indication: Diabetes mellitus
     Dosage: 1 TABLET
     Route: 048
     Dates: start: 2019
  10. DEXAMETHASONE [Concomitant]
     Active Substance: DEXAMETHASONE
     Indication: Diabetic retinal oedema
     Route: 031
     Dates: start: 20250529, end: 20250529
  11. DEXAMETHASONE [Concomitant]
     Active Substance: DEXAMETHASONE
     Indication: Diabetic retinal oedema
     Dosage: 0.7 MILLIGRAM
     Route: 031
     Dates: start: 20250626, end: 20250626
  12. DEXAMETHASONE [Concomitant]
     Active Substance: DEXAMETHASONE
     Indication: Diabetic retinal oedema
     Route: 031
     Dates: start: 20250116, end: 20250116
  13. DEXAMETHASONE [Concomitant]
     Active Substance: DEXAMETHASONE
     Indication: Diabetic retinal oedema
     Route: 031
     Dates: start: 20250918, end: 20250918
  14. DEXAMETHASONE [Concomitant]
     Active Substance: DEXAMETHASONE
     Indication: Diabetic retinal oedema
     Dosage: 0.7 MILLIGRAM
     Route: 031
     Dates: start: 20241107, end: 20241107
  15. FIBROBLAST GROWTH FACTOR 2 (BOVINE) [Concomitant]
     Active Substance: FIBROBLAST GROWTH FACTOR 2 (BOVINE)
     Indication: Prophylaxis
     Dosage: FREQUENCY : QID (FOUR TIMES A DAY)
     Route: 047
     Dates: start: 20250626, end: 20250703
  16. CONBERCEPT [Concomitant]
     Active Substance: CONBERCEPT
     Indication: Diabetic retinal oedema
     Dosage: 0.2 MILLIGRAM
     Route: 031
     Dates: start: 20241205, end: 20241205
  17. CONBERCEPT [Concomitant]
     Active Substance: CONBERCEPT
     Indication: Diabetic retinal oedema
     Route: 031
     Dates: start: 20250918, end: 20250918
  18. CONBERCEPT [Concomitant]
     Active Substance: CONBERCEPT
     Indication: Diabetic retinal oedema
     Route: 047
     Dates: start: 20250529, end: 20250529
  19. CONBERCEPT [Concomitant]
     Active Substance: CONBERCEPT
     Indication: Diabetic retinal oedema
     Dosage: 2 MILLIGRAM
     Route: 047
     Dates: start: 20250626, end: 20250626
  20. CONBERCEPT [Concomitant]
     Active Substance: CONBERCEPT
     Indication: Diabetic retinal oedema
     Dosage: 0.2 MILLIGRAM
     Route: 031
     Dates: start: 20250116, end: 20250116
  21. CONBERCEPT [Concomitant]
     Active Substance: CONBERCEPT
     Indication: Diabetic retinal oedema
     Dosage: 0.2 MILLIGRAM
     Route: 047
     Dates: start: 20240718, end: 20240718
  22. CONBERCEPT [Concomitant]
     Active Substance: CONBERCEPT
     Indication: Diabetic retinal oedema
     Dosage: 0.2 MILLIGRAM
     Route: 031
     Dates: start: 20240905, end: 20240905
  23. CONBERCEPT [Concomitant]
     Active Substance: CONBERCEPT
     Indication: Diabetic retinal oedema
     Route: 031
     Dates: start: 20250626, end: 20250626
  24. CONBERCEPT [Concomitant]
     Active Substance: CONBERCEPT
     Indication: Diabetic retinal oedema
     Dosage: 0.2 MILLIGRAM
     Route: 031
     Dates: start: 20241107, end: 20241107
  25. CONBERCEPT [Concomitant]
     Active Substance: CONBERCEPT
     Indication: Diabetic retinal oedema
     Dosage: 0.2 MILLIGRAM
     Route: 047
     Dates: start: 20250529, end: 20250529
  26. CONBERCEPT [Concomitant]
     Active Substance: CONBERCEPT
     Indication: Diabetic retinal oedema
     Dosage: 0.2 MILLIGRAM
     Route: 031
     Dates: start: 20250408, end: 20250408
  27. EDOXABAN TOSYLATE [Concomitant]
     Active Substance: EDOXABAN TOSYLATE
     Indication: Cerebrovascular disorder
     Route: 048
     Dates: start: 20250411
  28. OFLOXACIN [Concomitant]
     Active Substance: OFLOXACIN
     Indication: Prophylaxis
     Dosage: FREQUENCY: ONCE
     Route: 047
     Dates: start: 20250626, end: 20250626
  29. BENOXINATE HYDROCHLORIDE [Concomitant]
     Active Substance: BENOXINATE HYDROCHLORIDE
     Indication: Prophylaxis
     Route: 047
     Dates: start: 20250626, end: 20250626

REACTIONS (2)
  - Uterine polyp [Recovered/Resolved]
  - Upper respiratory tract infection [Recovering/Resolving]

NARRATIVE: CASE EVENT DATE: 20250707
